FAERS Safety Report 6122512-5 (Version None)
Quarter: 2009Q1

REPORT INFORMATION
  Report Type: 
  Country: None (occurrence: None)
  Receive Date: 20090318
  Receipt Date: 20081031
  Transmission Date: 20090719
  Serious: No
  Sender: FDA-Public Use
  Company Number: US-ASTRAZENECA-2008UW24491

PATIENT
  Age: 67 Year
  Sex: Female
  Weight: 62.6 kg

DRUGS (7)
  1. SYMBICORT [Suspect]
     Indication: THROAT TIGHTNESS
     Dosage: UNKNOWN
     Route: 055
  2. SYMBICORT [Suspect]
     Indication: ASTHMA
     Dosage: UNKNOWN
     Route: 055
  3. SYNTHROID [Concomitant]
  4. LIPITOR [Concomitant]
  5. VITAMINS [Concomitant]
  6. ATACAND [Concomitant]
  7. XANAX [Concomitant]

REACTIONS (2)
  - FEELING JITTERY [None]
  - TREMOR [None]
